FAERS Safety Report 4986702-7 (Version None)
Quarter: 2006Q2

REPORT INFORMATION
  Report Type: 
  Country: None (occurrence: None)
  Receive Date: 20060428
  Receipt Date: 20051005
  Transmission Date: 20061013
  Serious: Yes (Death)
  Sender: FDA-Public Use
  Company Number: US-MERCK-0510USA04835

PATIENT
  Age: 87 Year
  Sex: Female
  Weight: 77 kg

DRUGS (1)
  1. VIOXX [Suspect]
     Indication: ARTHRITIS
     Route: 048
     Dates: start: 20000517, end: 20001113

REACTIONS (3)
  - CARDIAC ARREST [None]
  - LIMB INJURY [None]
  - MYOCARDIAL INFARCTION [None]
